FAERS Safety Report 6367071-7 (Version None)
Quarter: 2009Q3

REPORT INFORMATION
  Report Type: 
  Country: None (occurrence: None)
  Receive Date: 20090921
  Receipt Date: 20090316
  Transmission Date: 20100115
  Serious: No
  Sender: FDA-Public Use
  Company Number: US-BAYER-200915982NA

PATIENT
  Sex: Female

DRUGS (1)
  1. MIRENA [Suspect]
     Indication: DRUG USE FOR UNKNOWN INDICATION
     Dosage: CONTINUOUS DELIVERY
     Route: 015
     Dates: start: 20090105, end: 20090306

REACTIONS (5)
  - ALOPECIA [None]
  - CYST [None]
  - FATIGUE [None]
  - IRON DEFICIENCY [None]
  - METRORRHAGIA [None]
